FAERS Safety Report 5942267-4 (Version None)
Quarter: 2008Q4

REPORT INFORMATION
  Report Type: 
  Country: None (occurrence: None)
  Receive Date: 20081105
  Receipt Date: 20081024
  Transmission Date: 20090506
  Serious: Yes (Other)
  Sender: FDA-Public Use
  Company Number: GB-AMGEN-UK316748

PATIENT

DRUGS (1)
  1. NEULASTA [Suspect]
     Indication: NEUTROPENIA
     Route: 058
     Dates: start: 20060101

REACTIONS (5)
  - DRUG INEFFECTIVE [None]
  - NEUTROPENIA [None]
  - OFF LABEL USE [None]
  - ORAL PAIN [None]
  - PYREXIA [None]
